FAERS Safety Report 16817667 (Version 2)
Quarter: 2019Q3

REPORT INFORMATION
  Report Type: Spontaneous
  Country: US (occurrence: US)
  Receive Date: 20190917
  Receipt Date: 20190919
  Transmission Date: 20191005
  Serious: No
  Sender: FDA-Public Use
  Company Number: US-PFIZER INC-2019397118

PATIENT
  Age: 3 Year
  Sex: Male

DRUGS (1)
  1. NEURONTIN [Suspect]
     Active Substance: GABAPENTIN
     Dosage: 120 MG, 2X/DAY (ONLY TAKING 2 ML ONCE IT IS DISSOLVED IN 10 ML OF WATER SO, ONLY GETTING 120 MG)
     Route: 048
     Dates: start: 2019

REACTIONS (3)
  - Intentional product misuse [Unknown]
  - Intentional product use issue [Unknown]
  - Vomiting [Unknown]
